FAERS Safety Report 8567773 (Version 3)
Quarter: 2012Q4

REPORT INFORMATION
  Report Type: 
  Country: US (occurrence: US)
  Receive Date: 20120518
  Receipt Date: 20121128
  Transmission Date: 20130627
  Serious: Yes (Death)
  Sender: FDA-Public Use
  Company Number: US-BRISTOL-MYERS SQUIBB COMPANY-16594665

PATIENT
  Age: 74 Year
  Sex: Female

DRUGS (11)
  1. SPRYCEL [Suspect]
     Indication: LEUKAEMIA
     Route: 048
     Dates: start: 201202, end: 201203
  2. FLEXERIL [Concomitant]
  3. NORVASC [Concomitant]
  4. LIPITOR [Concomitant]
  5. TOPROL XL [Concomitant]
  6. ZOLOFT [Concomitant]
  7. NEURONTIN [Concomitant]
  8. ASPIRIN [Concomitant]
  9. LUPRON [Concomitant]
  10. LORTAB [Concomitant]
     Dosage: 1 DF:7.5/500: Hydrocodone tartarate and acetoaminophen
  11. AMBIEN [Concomitant]

REACTIONS (1)
  - Malignant neoplasm progression [Fatal]
